FAERS Safety Report 8196792-9 (Version None)
Quarter: 2012Q1

REPORT INFORMATION
  Report Type: 
  Country: None (occurrence: None)
  Receive Date: 20120309
  Receipt Date: 20120307
  Transmission Date: 20120608
  Serious: Yes (Death)
  Sender: FDA-Public Use
  Company Number: PHFR2011IE05935

PATIENT
  Sex: Male

DRUGS (15)
  1. CLOZARIL [Suspect]
     Indication: SCHIZOPHRENIA
     Route: 048
     Dates: start: 19960726
  2. HALOPERIDOL [Concomitant]
     Dosage: 2 MG AT NOCTE
  3. DIAZEPAM [Concomitant]
     Dosage: 7 MG, BD (LONG TERM)
  4. COMBIVENT [Concomitant]
  5. PANTOPRAZOLE [Concomitant]
  6. FORTISIP [Concomitant]
  7. DONEPEZIL HCL [Concomitant]
     Dosage: 10 MG, QD
  8. FORTICREME [Concomitant]
     Dosage: UNK
  9. VENLAFAXINE [Concomitant]
     Dosage: 225 MG, QD
  10. ACETAMINOPHEN [Concomitant]
  11. MOVIPREP [Concomitant]
  12. LACTULOSE [Concomitant]
     Dosage: UNK UKN, UNK
  13. CALOGEN [Concomitant]
  14. CLOZARIL [Suspect]
     Dosage: 150 MG MANE, 325 MG NOCTE
  15. VENTOLIN DS [Concomitant]

REACTIONS (3)
  - WEIGHT DECREASED [None]
  - ASTHENIA [None]
  - DEATH [None]
